FAERS Safety Report 23548262 (Version 1)
Quarter: 2024Q1

REPORT INFORMATION
  Report Type: Spontaneous
  Country: RO (occurrence: RO)
  Receive Date: 20240221
  Receipt Date: 20240221
  Transmission Date: 20240410
  Serious: Yes (Death, Life-Threatening, Hospitalization, Other)
  Sender: FDA-Public Use
  Company Number: RO-BRISTOL-MYERS SQUIBB COMPANY-2023-137709

PATIENT
  Age: 76 Year

DRUGS (6)
  1. AZACITIDINE [Suspect]
     Active Substance: AZACITIDINE
     Indication: Acute erythroid leukaemia
     Dosage: 100 MILLIGRAM, ONCE A DAY (4TH CYCLE)
     Route: 065
  2. AZACITIDINE [Suspect]
     Active Substance: AZACITIDINE
     Dosage: 100 MILLIGRAM, ONCE A DAY (3RD CYCLE)
     Route: 065
  3. AZACITIDINE [Suspect]
     Active Substance: AZACITIDINE
     Dosage: 100 MILLIGRAM, ONCE A DAY (2ND CYCLE)
     Route: 065
  4. AZACITIDINE [Suspect]
     Active Substance: AZACITIDINE
     Dosage: 100 MILLIGRAM, ONCE A DAY (FOR 5 DAYS 1ST CYCLE)
     Route: 065
  5. VENETOCLAX [Concomitant]
     Active Substance: VENETOCLAX
     Indication: Acute erythroid leukaemia
     Dosage: 100 MILLIGRAM, ONCE A DAY (2ND CYCLE)
     Route: 065
  6. VENETOCLAX [Concomitant]
     Active Substance: VENETOCLAX
     Dosage: 100 MILLIGRAM, ONCE A DAY (REDUCED DOSE OF 100MG/DAY FOR 28 DAYS 1ST CYCLE)
     Route: 065

REACTIONS (5)
  - Acute pulmonary oedema [Fatal]
  - Condition aggravated [Fatal]
  - Sepsis [Unknown]
  - Pancytopenia [Unknown]
  - Off label use [Unknown]
